FAERS Safety Report 5154636-3 (Version None)
Quarter: 2006Q4

REPORT INFORMATION
  Report Type: 
  Country: None (occurrence: None)
  Receive Date: 20061113
  Receipt Date: 20061026
  Transmission Date: 20070319
  Serious: Yes (Hospitalization, Other)
  Sender: FDA-Public Use
  Company Number: 2006131931

PATIENT
  Age: 60 Year
  Sex: Male

DRUGS (3)
  1. LYRICA [Suspect]
     Indication: TRIGEMINAL NEURALGIA
     Dosage: 150 MG (75 MG, 2 IN 1 D), ORAL
     Route: 048
     Dates: start: 20050101
  2. ZYLOPRIM [Concomitant]
  3. ACETAMINOPHEN [Concomitant]

REACTIONS (6)
  - CLAUSTROPHOBIA [None]
  - LOSS OF CONSCIOUSNESS [None]
  - NAUSEA [None]
  - PARAESTHESIA [None]
  - SYNCOPE [None]
  - THROAT IRRITATION [None]
